FAERS Safety Report 8834822 (Version 2)
Quarter: 2012Q4

REPORT INFORMATION
  Report Type: 
  Country: GB (occurrence: GB)
  Receive Date: 20121010
  Receipt Date: 20121017
  Transmission Date: 20130627
  Serious: Yes (Hospitalization)
  Sender: FDA-Public Use
  Company Number: GB-VIIV HEALTHCARE LIMITED-B0828550A

PATIENT
  Age: 49 Year
  Sex: Female
  Weight: 74 kg

DRUGS (3)
  1. KIVEXA [Suspect]
     Indication: HIV INFECTION
     Dosage: 1TAB Per day
     Route: 065
     Dates: start: 20120803, end: 20120830
  2. SUSTIVA [Concomitant]
     Dates: start: 2009
  3. TRUVADA [Concomitant]
     Dates: start: 2009

REACTIONS (1)
  - Erythema nodosum [Recovered/Resolved]
